FAERS Safety Report 15803432 (Version 2)
Quarter: 2019Q1

REPORT INFORMATION
  Report Type: Spontaneous
  Country: US (occurrence: US)
  Receive Date: 20190109
  Receipt Date: 20190129
  Transmission Date: 20190417
  Serious: No
  Sender: FDA-Public Use
  Company Number: US-BIOMARINAP-US-2019-121365

PATIENT
  Sex: Male
  Weight: 16.96 kg

DRUGS (1)
  1. VIMIZIM [Suspect]
     Active Substance: ELOSULFASE ALFA
     Indication: PRODUCT USED FOR UNKNOWN INDICATION
     Dosage: 35 MILLIGRAM, QW
     Route: 042
     Dates: start: 201605

REACTIONS (4)
  - Influenza [Unknown]
  - Pain [Unknown]
  - Pyrexia [Unknown]
  - Oropharyngeal pain [Unknown]
